FAERS Safety Report 16881583 (Version 1)
Quarter: 2019Q4

REPORT INFORMATION
  Report Type: Spontaneous
  Country: US (occurrence: US)
  Receive Date: 20191003
  Receipt Date: 20191003
  Transmission Date: 20200122
  Serious: No
  Sender: FDA-Public Use
  Company Number: US-BAYER-2019-176672

PATIENT
  Sex: Female

DRUGS (2)
  1. DROSPIRENONE + ETHINYLESTRADIOL + LEVOMEFOLATE CALCIUM [Suspect]
     Active Substance: DROSPIRENONE\ETHINYL ESTRADIOL\LEVOMEFOLATE CALCIUM
     Dosage: UNK UNK, QD
     Route: 048
  2. BEYAZ [Suspect]
     Active Substance: DROSPIRENONE\ETHINYL ESTRADIOL\LEVOMEFOLATE CALCIUM
     Dosage: UNK, QD
     Route: 048

REACTIONS (3)
  - Product availability issue [None]
  - Metrorrhagia [None]
  - Endometriosis [None]

NARRATIVE: CASE EVENT DATE: 2019
